FAERS Safety Report 5235898-0 (Version None)
Quarter: 2007Q1

REPORT INFORMATION
  Report Type: 
  Country: None (occurrence: None)
  Receive Date: 20061208
  Receipt Date: 20051212
  Transmission Date: 20070707
  Serious: Yes (Other)
  Sender: FDA-Public Use
  Company Number: 2005UW18680

PATIENT
  Age: 82 Year
  Sex: Female
  Weight: 69.399 kg

DRUGS (2)
  1. CRESTOR [Suspect]
     Indication: BLOOD CHOLESTEROL INCREASED
     Dosage: 5 MG PO
     Route: 048
     Dates: start: 20051209
  2. LEVOTHYROXINE SODIUM [Concomitant]

REACTIONS (1)
  - BREAST DISCOMFORT [None]
